FAERS Safety Report 19412652 (Version 1)
Quarter: 2021Q2

REPORT INFORMATION
  Report Type: Spontaneous
  Country: CA (occurrence: CA)
  Receive Date: 20210614
  Receipt Date: 20210614
  Transmission Date: 20210717
  Serious: Yes (Life-Threatening, Other)
  Sender: FDA-Public Use
  Company Number: CA-ACCORD-228242

PATIENT
  Age: 58 Year
  Sex: Female
  Weight: 98 kg

DRUGS (11)
  1. FUROSEMIDE. [Concomitant]
     Active Substance: FUROSEMIDE
     Dosage: NOT SPECIFIED
     Route: 065
  2. GABAPENTIN. [Concomitant]
     Active Substance: GABAPENTIN
     Dosage: NOT SPECIFIED
  3. LORAZEPAM. [Concomitant]
     Active Substance: LORAZEPAM
     Dosage: NOT SPECIFIED
  4. METHADONE [Concomitant]
     Active Substance: METHADONE HYDROCHLORIDE
     Dosage: NOT SPECIFIED
  5. PACLITAXEL/PACLITAXEL LIPOSOME [Suspect]
     Active Substance: PACLITAXEL
     Indication: NEOPLASM MALIGNANT
     Dosage: SOLUTION INTRAVENOUS,1 EVERY 21 DAYS
     Route: 041
  6. CARBOPLATIN. [Concomitant]
     Active Substance: CARBOPLATIN
     Dosage: SOLUTION INTRAVENOUS
  7. ROSUVASTATIN/ROSUVASTATIN CALCIUM [Concomitant]
     Active Substance: ROSUVASTATIN CALCIUM
     Dosage: NOT SPECIFIED
     Route: 058
  8. INSPIOLTO RESPIMAT [Concomitant]
     Active Substance: OLODATEROL HYDROCHLORIDE\TIOTROPIUM BROMIDE MONOHYDRATE
     Dosage: SOLUTION INHALATION
  9. ASA [Concomitant]
     Active Substance: ASPIRIN
     Dosage: NOT SPECIFIED
     Route: 065
  10. HYDROMORPHONE/HYDROMORPHONE HYDROCHLORIDE [Concomitant]
     Active Substance: HYDROMORPHONE
     Dosage: NOT SPECIFIED
  11. NICOTINE. [Concomitant]
     Active Substance: NICOTINE
     Dosage: NOT SPECIFIED

REACTIONS (3)
  - Oxygen saturation decreased [Recovered/Resolved]
  - Anxiety [Recovered/Resolved]
  - Dyspnoea [Recovered/Resolved]
